FAERS Safety Report 26142703 (Version 1)
Quarter: 2025Q4

REPORT INFORMATION
  Report Type: Report from Study
  Country: EU (occurrence: EU)
  Receive Date: 20251211
  Receipt Date: 20251211
  Transmission Date: 20260118
  Serious: Yes (Other)
  Sender: ABBVIE
  Company Number: EU-ABBVIE-6571588

PATIENT
  Age: 63 Year
  Sex: Female

DRUGS (2)
  1. FOSCARBIDOPA\FOSLEVODOPA [Suspect]
     Active Substance: FOSCARBIDOPA\FOSLEVODOPA
     Indication: Parkinson^s disease
     Dosage: CR 0.27ML/H; CR HIGH 0.30ML/H; CR LOW 0.22ML/H; ED 0.30ML
     Route: 058
     Dates: start: 20250203, end: 2025
  2. FOSCARBIDOPA\FOSLEVODOPA [Suspect]
     Active Substance: FOSCARBIDOPA\FOSLEVODOPA
     Dosage: CR 0.25ML/H; CR HIGH 0.27ML/H; CR LOW 0.22ML/H; ED 0.30ML
     Route: 058
     Dates: start: 2025

REACTIONS (2)
  - Lumbar vertebral fracture [Recovering/Resolving]
  - Fall [Unknown]

NARRATIVE: CASE EVENT DATE: 20251116
